FAERS Safety Report 25902383 (Version 1)
Quarter: 2025Q4

REPORT INFORMATION
  Report Type: Spontaneous
  Country: US (occurrence: US)
  Receive Date: 20251009
  Receipt Date: 20251009
  Transmission Date: 20260117
  Serious: Yes (Other)
  Sender: NOVARTIS
  Company Number: US-002147023-NVSC2025US150598

PATIENT
  Sex: Female

DRUGS (1)
  1. TABRECTA [Suspect]
     Active Substance: CAPMATINIB
     Indication: MET exon 14 skipping mutation cancer
     Dosage: 400 MG, BID
     Route: 048
     Dates: start: 202504, end: 20250804

REACTIONS (2)
  - Liver injury [Unknown]
  - Rash [Recovered/Resolved]
